FAERS Safety Report 8445824-9 (Version None)
Quarter: 2012Q2

REPORT INFORMATION
  Report Type: 
  Country: None (occurrence: None)
  Receive Date: 20120618
  Receipt Date: 20120614
  Transmission Date: 20120825
  Serious: Yes (Life-Threatening, Other)
  Sender: FDA-Public Use
  Company Number: PHHY2012JP040733

PATIENT
  Sex: Male
  Weight: 72 kg

DRUGS (21)
  1. NEORAL [Suspect]
     Indication: APLASTIC ANAEMIA
     Dosage: 420 MG, QD
     Route: 048
     Dates: start: 20120413, end: 20120419
  2. NEORAL [Suspect]
     Dosage: 250 MG, QD
     Route: 048
     Dates: start: 20120420, end: 20120420
  3. ADRENAL HORMONE PREPARATIONS [Concomitant]
     Route: 048
  4. OMEPRAZOLE [Concomitant]
     Dosage: 20 MG, UNK
     Route: 048
     Dates: start: 20120405, end: 20120413
  5. PRIMOBOLAN-DEPOT INJ [Concomitant]
     Dosage: 20 MG, UNK
     Route: 048
     Dates: start: 20120413, end: 20120426
  6. DIFLUCAN [Concomitant]
     Dosage: 100 MG, UNK
     Route: 048
     Dates: start: 20120413, end: 20120510
  7. LOSARTAN POTASSIUM [Concomitant]
     Dosage: 25 MG, UNK
     Route: 048
     Dates: start: 20120415, end: 20120502
  8. NEORAL [Suspect]
     Dosage: 125 MG, UNK
     Route: 048
     Dates: start: 20120510, end: 20120510
  9. SODIUM CHLORIDE [Concomitant]
     Dosage: 100 ML, UNK
     Route: 041
     Dates: start: 20120413, end: 20120417
  10. CORTICOSTEROID NOS [Concomitant]
  11. PURSENNID [Concomitant]
     Dosage: UNK UKN, UNK
     Route: 048
     Dates: start: 20120408, end: 20120414
  12. GRAN [Concomitant]
     Dosage: UNK UKN, UNK
     Route: 058
     Dates: start: 20120415, end: 20120423
  13. NEORAL [Suspect]
     Dosage: 75 MG, UNK
     Route: 048
     Dates: start: 20120511, end: 20120513
  14. PYRINAZIN [Concomitant]
     Dosage: 3 G, UNK
     Route: 048
     Dates: start: 20120413, end: 20120417
  15. SOLU-MEDROL [Concomitant]
     Dosage: 125 MG, UNK
     Route: 041
     Dates: start: 20120413, end: 20120417
  16. NEORAL [Suspect]
     Dosage: 150 MG, UNK
     Route: 048
     Dates: start: 20120421, end: 20120509
  17. THYMOGLOBULIN [Concomitant]
     Route: 041
  18. LACTEC [Concomitant]
     Dosage: 500 ML, UNK
     Route: 041
     Dates: end: 20120510
  19. LACTEC [Concomitant]
     Dosage: 500 ML, UNK
     Route: 041
     Dates: start: 20120413
  20. OMEPRAZOLE [Concomitant]
     Dosage: 20 MG, UNK
     Route: 048
     Dates: start: 20120414, end: 20120503
  21. VALTREX [Concomitant]
     Dosage: 500 MG, UNK
     Route: 048
     Dates: start: 20120413, end: 20120419

REACTIONS (8)
  - URINE OUTPUT DECREASED [None]
  - HEPATIC CIRRHOSIS [None]
  - CONDITION AGGRAVATED [None]
  - RENAL FAILURE [None]
  - PYREXIA [None]
  - RENAL IMPAIRMENT [None]
  - ASCITES [None]
  - PANCYTOPENIA [None]
